FAERS Safety Report 7254964-1 (Version None)
Quarter: 2011Q1

REPORT INFORMATION
  Report Type: 
  Country: None (occurrence: None)
  Receive Date: 20110129
  Receipt Date: 20100331
  Transmission Date: 20110831
  Serious: No
  Sender: FDA-Public Use
  Company Number: US-ABBOTT-10P-163-0624796-00

PATIENT
  Sex: Male
  Weight: 93.524 kg

DRUGS (1)
  1. HUMIRA [Suspect]
     Indication: PSORIATIC ARTHROPATHY
     Dates: start: 20080901, end: 20091212

REACTIONS (4)
  - PAIN IN EXTREMITY [None]
  - PSORIASIS [None]
  - PAIN [None]
  - ARTHRALGIA [None]
